FAERS Safety Report 8293805-0 (Version None)
Quarter: 2012Q2

REPORT INFORMATION
  Report Type: 
  Country: None (occurrence: None)
  Receive Date: 20120413
  Receipt Date: 20120405
  Transmission Date: 20120825
  Serious: Yes (Other)
  Sender: FDA-Public Use
  Company Number: 201203084

PATIENT
  Age: 53 Year
  Sex: Male

DRUGS (5)
  1. PRILOSEC [Concomitant]
  2. XIAFLEX [Suspect]
     Indication: DUPUYTREN'S CONTRACTURE
     Dosage: 0.58 MG, 1 IN 1 D, INTRALESIONAL; 1 IN 1 D, INTRALESIONAL; 1 IN 1 D, INTRALESIONAL
     Route: 026
     Dates: start: 20120321, end: 20120321
  3. XIAFLEX [Suspect]
     Indication: DUPUYTREN'S CONTRACTURE
     Dosage: 0.58 MG, 1 IN 1 D, INTRALESIONAL; 1 IN 1 D, INTRALESIONAL; 1 IN 1 D, INTRALESIONAL
     Route: 026
     Dates: start: 20110101, end: 20110101
  4. XIAFLEX [Suspect]
     Indication: DUPUYTREN'S CONTRACTURE
     Dosage: 0.58 MG, 1 IN 1 D, INTRALESIONAL; 1 IN 1 D, INTRALESIONAL; 1 IN 1 D, INTRALESIONAL
     Route: 026
     Dates: start: 20120201, end: 20120201
  5. VIARGA (SILDENAFIL CITRATE) [Concomitant]

REACTIONS (3)
  - LACERATION [None]
  - PROCEDURAL COMPLICATION [None]
  - SKIN GRAFT [None]
